FAERS Safety Report 11460944 (Version 1)
Quarter: 2015Q3

REPORT INFORMATION
  Report Type: Spontaneous
  Country: US (occurrence: US)
  Receive Date: 20150904
  Receipt Date: 20150904
  Transmission Date: 20151125
  Serious: No
  Sender: FDA-Public Use
  Company Number: CHPA2015US004680

PATIENT
  Age: 66 Year
  Sex: Male

DRUGS (1)
  1. IBUPROFEN. [Suspect]
     Active Substance: IBUPROFEN
     Indication: ARTHRALGIA
     Dosage: MORE THAN 2 DF
     Route: 048

REACTIONS (2)
  - Abdominal pain upper [Recovered/Resolved]
  - Nausea [Recovered/Resolved]
